FAERS Safety Report 6824211-0 (Version None)
Quarter: 2010Q3

REPORT INFORMATION
  Report Type: 
  Country: None (occurrence: None)
  Receive Date: 20100708
  Receipt Date: 20070507
  Transmission Date: 20110219
  Serious: No
  Sender: FDA-Public Use
  Company Number: US-PFIZER INC-2006117708

PATIENT
  Sex: Female
  Weight: 74.84 kg

DRUGS (5)
  1. CHANTIX [Suspect]
     Dates: start: 20060920
  2. PROZAC [Concomitant]
  3. ATENOLOL [Concomitant]
     Indication: HYPERTENSION
  4. PREMARIN [Concomitant]
  5. LIPITOR [Concomitant]
     Indication: BLOOD CHOLESTEROL INCREASED

REACTIONS (4)
  - ASTHENIA [None]
  - DRUG INTOLERANCE [None]
  - NERVOUSNESS [None]
  - SOMNOLENCE [None]
